FAERS Safety Report 21076450 (Version 6)
Quarter: 2024Q4

REPORT INFORMATION
  Report Type: Spontaneous
  Country: IN (occurrence: IN)
  Receive Date: 20220713
  Receipt Date: 20241114
  Transmission Date: 20250115
  Serious: Yes (Hospitalization, Other)
  Sender: PFIZER
  Company Number: IN-PFIZER INC-202200124064

PATIENT
  Age: 56 Year
  Sex: Female
  Weight: 64 kg

DRUGS (22)
  1. PALBOCICLIB [Suspect]
     Active Substance: PALBOCICLIB
     Indication: Breast cancer stage IV
     Dosage: 125 MG, 1X/DAY
     Route: 048
     Dates: start: 20210920, end: 202112
  2. PALBOCICLIB [Suspect]
     Active Substance: PALBOCICLIB
     Dosage: UNK
     Dates: end: 202304
  3. PALBOCICLIB [Suspect]
     Active Substance: PALBOCICLIB
     Dosage: 1X/DAY FOR 21 DAYS, 7 DAYS OFF
     Route: 048
     Dates: start: 202402
  4. PALBOCICLIB [Suspect]
     Active Substance: PALBOCICLIB
     Dosage: 125 MG OD FOR 21 DAYS, 7 DAYS BREAK
     Route: 048
  5. ZOLEDRONIC ACID [Concomitant]
     Active Substance: ZOLEDRONIC ACID
     Dosage: UNK
     Dates: start: 20210916
  6. LETROZOLE [Concomitant]
     Active Substance: LETROZOLE
     Dosage: UNK
     Dates: start: 20210916, end: 202304
  7. LETROZOLE [Concomitant]
     Active Substance: LETROZOLE
     Dosage: UNK, DAILY
  8. DEXAMETHASONE [Concomitant]
     Active Substance: DEXAMETHASONE
     Dosage: 8 MG
     Route: 042
     Dates: start: 20211220
  9. PANTOPRAZOLE [Concomitant]
     Active Substance: PANTOPRAZOLE
     Dosage: 40 MG
     Route: 042
     Dates: start: 20211220
  10. ZOLEDRONIC ACID [Concomitant]
     Active Substance: ZOLEDRONIC ACID
     Dosage: 4 MG
     Dates: start: 20211220
  11. ZOLEDRONIC ACID [Concomitant]
     Active Substance: ZOLEDRONIC ACID
     Dosage: 4 MG, MONTHLY
     Route: 042
     Dates: start: 20240806
  12. SODIUM CHLORIDE [Concomitant]
     Active Substance: SODIUM CHLORIDE
     Dosage: 100 ML
     Dates: start: 20211220
  13. SODIUM CHLORIDE [Concomitant]
     Active Substance: SODIUM CHLORIDE
     Dosage: 100 ML
     Route: 042
     Dates: start: 20240806
  14. NEUPEG [Concomitant]
     Dosage: 6 MG
     Route: 058
     Dates: start: 20211220
  15. ONDANSETRON HYDROCHLORIDE [Concomitant]
     Active Substance: ONDANSETRON HYDROCHLORIDE
     Dosage: 8 MG (1 -1-0 -1 X 7 DAYS AFTER FOOD)
  16. TAPAL [ACETYLSALICYLIC ACID] [Concomitant]
     Dosage: 1 -0-0- 1 X 7 DAYS AFTER FOOD
  17. PAN [Concomitant]
     Dosage: 40 MG ( 1 -0-0-1 X 7DAYS BEFORE FOOD)
  18. MUCAINE [ALUMINIUM HYDROXIDE GEL;MAGNESIUM HYDROXIDE;OXETACAINE] [Concomitant]
     Dosage: 1-0-0 -1 X 30DAYS AFTER FOOD
  19. CURCUPAX [Concomitant]
     Dosage: UNK, 2X/DAY (1 -0-0- 1 X 30DAYS AFTER FOOD)
  20. NUTRIA [Concomitant]
     Dosage: UNK, 1X/DAY (1 -0 - 0 - 0 X 30DAYS AFTER FOOD)
  21. NOVOBIOTIC [Concomitant]
     Dosage: UNK, 2X/DAY (1 -0-0-1 X 30DAYS AFTER FOOD)
  22. FULVES [Concomitant]
     Indication: Breast cancer
     Dosage: 500 MG, MONTHLY (MONTHLY ONCE)
     Route: 030

REACTIONS (11)
  - Deep vein thrombosis [Recovering/Resolving]
  - Pulmonary embolism [Recovering/Resolving]
  - Back pain [Recovered/Resolved]
  - Breast pain [Unknown]
  - Diastolic dysfunction [Unknown]
  - Weight decreased [Unknown]
  - Burning sensation [Unknown]
  - Bone pain [Unknown]
  - Full blood count abnormal [Unknown]
  - Neoplasm progression [Unknown]
  - Inappropriate schedule of product administration [Unknown]

NARRATIVE: CASE EVENT DATE: 20220101
